FAERS Safety Report 21094838 (Version 2)
Quarter: 2022Q3

REPORT INFORMATION
  Report Type: Spontaneous
  Country: GB (occurrence: GB)
  Receive Date: 20220718
  Receipt Date: 20220725
  Transmission Date: 20221026
  Serious: Yes (Other)
  Sender: FDA-Public Use
  Company Number: GB-GLAXOSMITHKLINE-GB2022EME106477

PATIENT

DRUGS (1)
  1. FLUTICASONE FUROATE [Suspect]
     Active Substance: FLUTICASONE FUROATE
     Indication: Product used for unknown indication
     Dosage: UNK

REACTIONS (9)
  - Type 2 diabetes mellitus [Unknown]
  - Anxiety [Unknown]
  - Dry mouth [Unknown]
  - Weight decreased [Unknown]
  - Skin odour abnormal [Unknown]
  - Urine odour abnormal [Unknown]
  - Abnormal faeces [Unknown]
  - Parosmia [Unknown]
  - Product label issue [Unknown]
